FAERS Safety Report 8348477-3 (Version None)
Quarter: 2012Q2

REPORT INFORMATION
  Report Type: 
  Country: None (occurrence: None)
  Receive Date: 20120509
  Receipt Date: 20120508
  Transmission Date: 20120825
  Serious: Yes (Life-Threatening)
  Sender: FDA-Public Use
  Company Number: DE-AMGEN-DEUNI2012018099

PATIENT
  Age: 32 Year
  Sex: Female
  Weight: 67 kg

DRUGS (1)
  1. ROMIPLOSTIM [Suspect]
     Indication: IDIOPATHIC THROMBOCYTOPENIC PURPURA
     Dosage: 60 MUG, QWK
     Route: 058
     Dates: start: 20110317

REACTIONS (1)
  - THROMBOSIS [None]
